FAERS Safety Report 13002293 (Version 1)
Quarter: 2016Q4

REPORT INFORMATION
  Report Type: Spontaneous
  Country: US (occurrence: US)
  Receive Date: 20161206
  Receipt Date: 20161206
  Transmission Date: 20170207
  Serious: Yes (Death, Other)
  Sender: FDA-Public Use
  Company Number: US-ASTELLAS-2016US047532

PATIENT
  Age: 49 Year
  Sex: Female

DRUGS (10)
  1. TACROLIMUS. [Suspect]
     Active Substance: TACROLIMUS
     Indication: PROPHYLAXIS AGAINST GRAFT VERSUS HOST DISEASE
     Dosage: UNK UNK, UNKNOWN FREQ.
     Route: 065
  2. PREDNISONE. [Concomitant]
     Active Substance: PREDNISONE
     Indication: VASCULITIS
     Dosage: UNK UNK, UNKNOWN FREQ.
     Route: 065
  3. METHOTREXATE. [Suspect]
     Active Substance: METHOTREXATE
     Indication: PROPHYLAXIS AGAINST GRAFT VERSUS HOST DISEASE
     Dosage: UNK UNK, UNKNOWN FREQ.
     Route: 065
  4. ACYCLOVIR                          /00587301/ [Concomitant]
     Active Substance: ACYCLOVIR
     Indication: ANTIBIOTIC PROPHYLAXIS
     Dosage: UNK UNK, UNKNOWN FREQ.
     Route: 065
  5. LEVOFLOXACIN. [Concomitant]
     Active Substance: LEVOFLOXACIN
     Indication: ANTIBIOTIC PROPHYLAXIS
     Dosage: UNK UNK, UNKNOWN FREQ.
     Route: 065
  6. FLUCONAZOLE. [Concomitant]
     Active Substance: FLUCONAZOLE
     Indication: ANTIBIOTIC PROPHYLAXIS
     Dosage: UNK UNK, UNKNOWN FREQ.
     Route: 065
  7. MYCOPHENOLATE MOFETIL. [Suspect]
     Active Substance: MYCOPHENOLATE MOFETIL
     Indication: PROPHYLAXIS AGAINST GRAFT VERSUS HOST DISEASE
     Dosage: UNK UNK, UNKNOWN FREQ.
     Route: 065
  8. FLUDARABINE [Concomitant]
     Active Substance: FLUDARABINE PHOSPHATE
     Indication: IMMUNE TOLERANCE INDUCTION
     Dosage: 40 MG/M2, EVERY 24 HOURS FOR FOUR DOSES
     Route: 065
  9. BUSULFAN. [Concomitant]
     Active Substance: BUSULFAN
     Indication: IMMUNE TOLERANCE INDUCTION
     Dosage: 0.8 MG/KG, EVERY 6 HOURS FOR 16 DOSES
     Route: 065
  10. ATG RABBIT [Concomitant]
     Active Substance: LAPINE T-LYMPHOCYTE IMMUNE GLOBULIN
     Indication: IMMUNE TOLERANCE INDUCTION
     Dosage: 0.5 MG/KG, ON DAY 3 AND 2 MG/KG EVERY 24 HOUR ON DAY 2 AND DAY 1
     Route: 065

REACTIONS (8)
  - Acute graft versus host disease in skin [Unknown]
  - Mucosal inflammation [Unknown]
  - Multiple organ dysfunction syndrome [Fatal]
  - Acute graft versus host disease in liver [Unknown]
  - Drug ineffective for unapproved indication [Unknown]
  - Acute graft versus host disease in intestine [Unknown]
  - Febrile neutropenia [Unknown]
  - BK virus infection [Fatal]
